FAERS Safety Report 10248644 (Version 1)
Quarter: 2014Q2

REPORT INFORMATION
  Report Type: Spontaneous
  Country: US (occurrence: None)
  Receive Date: 20140617
  Receipt Date: 20140617
  Transmission Date: 20141212
  Serious: Yes (Other)
  Sender: FDA-Public Use
  Company Number: None

PATIENT
  Age: 44 Year
  Sex: Female
  Weight: 70.31 kg

DRUGS (11)
  1. TOPIRAMATE [Suspect]
     Indication: MIGRAINE PROPHYLAXIS
     Dosage: 1 TAB QD ORAL
     Route: 048
     Dates: start: 20060326, end: 20140115
  2. IMITREX [Concomitant]
  3. TOPAMAX [Concomitant]
  4. NADOLOL [Concomitant]
  5. AMBIEN [Concomitant]
  6. EFFEXOR [Concomitant]
  7. PANTOPRAZOLE [Concomitant]
  8. XANAX [Concomitant]
  9. NORTRIPTYLINE [Concomitant]
  10. IBUPROFEN [Concomitant]
  11. LIPITOR [Concomitant]

REACTIONS (3)
  - Alopecia [None]
  - Alopecia [None]
  - Alopecia [None]
